FAERS Safety Report 9457370 (Version 2)
Quarter: 2013Q3

REPORT INFORMATION
  Report Type: Spontaneous
  Country: US (occurrence: US)
  Receive Date: 20130814
  Receipt Date: 20130913
  Transmission Date: 20140515
  Serious: Yes (Other)
  Sender: FDA-Public Use
  Company Number: PHEH2013US004090

PATIENT
  Age: 75 Year
  Sex: Male

DRUGS (6)
  1. EXELON PATCH [Suspect]
     Indication: DEMENTIA ALZHEIMER^S TYPE
     Dosage: 9.5 MG (PATCH 10 CM2), DAILY
     Route: 062
     Dates: start: 20110101
  2. EXELON PATCH [Suspect]
     Dosage: UNK
  3. LISINOPRIL [Concomitant]
     Dosage: 20/12.5 MG, QD
  4. SERTRALINE [Concomitant]
     Dosage: 100 MG, QD
  5. ARICEPT [Concomitant]
     Dosage: UNK UKN, UNK
  6. ARCAPTA [Concomitant]
     Indication: CHRONIC OBSTRUCTIVE PULMONARY DISEASE
     Dosage: UNK UKN, UNK

REACTIONS (4)
  - Depression [Recovered/Resolved]
  - Nightmare [Unknown]
  - Amnesia [Recovered/Resolved]
  - Application site rash [Recovered/Resolved]
